FAERS Safety Report 4691309-5 (Version None)
Quarter: 2005Q2

REPORT INFORMATION
  Report Type: 
  Country: None (occurrence: None)
  Receive Date: 20050610
  Receipt Date: 20050531
  Transmission Date: 20051028
  Serious: Yes (Hospitalization, Other)
  Sender: FDA-Public Use
  Company Number: 2005082368

PATIENT
  Age: 46 Year
  Sex: Female

DRUGS (4)
  1. DILANTIN KAPSEAL [Suspect]
     Indication: CONVULSION
     Dosage: (100 MG),ORAL
     Route: 048
  2. BUTALBITAL COMPOUND (BUTALBITAL) [Concomitant]
  3. DIPHENHYDRAMINE HCL [Concomitant]
  4. FLUOXETINE HCL [Concomitant]

REACTIONS (2)
  - FACIAL BONES FRACTURE [None]
  - OVERDOSE [None]
